FAERS Safety Report 17197407 (Version 1)
Quarter: 2019Q4

REPORT INFORMATION
  Report Type: Spontaneous
  Country: SA (occurrence: SA)
  Receive Date: 20191224
  Receipt Date: 20191224
  Transmission Date: 20200122
  Serious: Yes (Death, Hospitalization, Other)
  Sender: FDA-Public Use
  Company Number: SA-JNJFOC-20191231021

PATIENT
  Sex: Female

DRUGS (2)
  1. RIVAROXABAN [Suspect]
     Active Substance: RIVAROXABAN
     Dosage: 15 MG
     Route: 048
     Dates: end: 201912
  2. RIVAROXABAN [Suspect]
     Active Substance: RIVAROXABAN
     Indication: PRODUCT USED FOR UNKNOWN INDICATION
     Dosage: 15 MG
     Route: 048
     Dates: end: 201912

REACTIONS (9)
  - Acute kidney injury [Fatal]
  - Hepatic function abnormal [Unknown]
  - Cardiac failure [Fatal]
  - Gastrointestinal haemorrhage [Unknown]
  - Metabolic acidosis [Fatal]
  - Colitis [Unknown]
  - Renal impairment [Unknown]
  - Hepatic failure [Fatal]
  - Abdominal pain [Unknown]

NARRATIVE: CASE EVENT DATE: 201912
